FAERS Safety Report 5815788-2 (Version None)
Quarter: 2008Q3

REPORT INFORMATION
  Report Type: 
  Country: None (occurrence: None)
  Receive Date: 20080716
  Receipt Date: 20080716
  Transmission Date: 20090109
  Serious: No
  Sender: FDA-Public Use
  Company Number: None

PATIENT
  Age: 46 Year
  Sex: Female
  Weight: 99.7913 kg

DRUGS (1)
  1. GEODON [Suspect]
     Indication: TOURETTE'S DISORDER
     Dosage: 80MG TWICE DAILY PO
     Route: 048
     Dates: start: 20040316, end: 20080329

REACTIONS (7)
  - ADVERSE DRUG REACTION [None]
  - DRUG INEFFECTIVE [None]
  - DYSKINESIA [None]
  - DYSPNOEA [None]
  - MUSCLE TIGHTNESS [None]
  - PARALYSIS [None]
  - THROAT TIGHTNESS [None]
